FAERS Safety Report 14686654 (Version 6)
Quarter: 2018Q4

REPORT INFORMATION
  Report Type: Spontaneous
  Country: US (occurrence: US)
  Receive Date: 20180327
  Receipt Date: 20181011
  Transmission Date: 20190204
  Serious: Yes (Congenital Anomaly, Other)
  Sender: FDA-Public Use
  Company Number: US-BIOMARINAP-US-2018-117562

PATIENT
  Age: 0 Day
  Sex: Male
  Weight: 2.49 kg

DRUGS (1)
  1. KUVAN [Suspect]
     Active Substance: SAPROPTERIN DIHYDROCHLORIDE
     Indication: PHENYLKETONURIA
     Dosage: 1000 MG, QD
     Dates: start: 20111104

REACTIONS (3)
  - Hypophagia [Unknown]
  - Deafness [Unknown]
  - Pierre Robin syndrome [Not Recovered/Not Resolved]

NARRATIVE: CASE EVENT DATE: 20180311
